FAERS Safety Report 10948514 (Version 2)
Quarter: 2015Q2

REPORT INFORMATION
  Report Type: Spontaneous
  Country: NL (occurrence: None)
  Receive Date: 20150320
  Receipt Date: 20150423
  Transmission Date: 20150821
  Serious: Yes (Hospitalization, Other)
  Sender: FDA-Public Use
  Company Number: 2015NL002423

PATIENT
  Age: 82 Year
  Sex: Male

DRUGS (1)
  1. ELIGARD [Suspect]
     Active Substance: LEUPROLIDE ACETATE
     Indication: PRODUCT USED FOR UNKNOWN INDICATION
     Dosage: UNK, ONCE EVERY SIX MONTHS, SUBCUTAEOUS
     Route: 058

REACTIONS (1)
  - Cardiac failure [None]

NARRATIVE: CASE EVENT DATE: 201503
